FAERS Safety Report 7674402-4 (Version None)
Quarter: 2011Q3

REPORT INFORMATION
  Report Type: 
  Country: None (occurrence: None)
  Receive Date: 20110810
  Receipt Date: 20110801
  Transmission Date: 20111222
  Serious: Yes (Hospitalization, Other)
  Sender: FDA-Public Use
  Company Number: US-ELI_LILLY_AND_COMPANY-US201105001891

PATIENT
  Sex: Female
  Weight: 80.272 kg

DRUGS (4)
  1. TOPROL-XL [Concomitant]
     Dosage: 25 UNK, BID
  2. SIMVASTATIN [Concomitant]
     Dosage: 80 MG, UNKNOWN
  3. EFFIENT [Suspect]
     Dosage: 10 MG, QD
     Route: 048
     Dates: start: 20100715, end: 20110629
  4. ASPIRIN [Concomitant]
     Dosage: 325 UNK, UNKNOWN

REACTIONS (2)
  - ACUTE MYOCARDIAL INFARCTION [None]
  - DRUG INEFFECTIVE [None]
